FAERS Safety Report 9718679 (Version 1)
Quarter: 2013Q4

REPORT INFORMATION
  Report Type: Not Available
  Country: US (occurrence: US)
  Receive Date: 20131125
  Receipt Date: 20131125
  Transmission Date: 20140711
  Serious: No
  Sender: FDA-Public Use
  Company Number: US-H. LUNDBECK A/S-DKLU1091426

PATIENT
  Age: 30 Year
  Sex: Female

DRUGS (2)
  1. ONFI [Suspect]
     Indication: COMPLEX PARTIAL SEIZURES
  2. ONFI [Suspect]
     Indication: EPILEPSY

REACTIONS (3)
  - Dyspnoea [Unknown]
  - Cough [Unknown]
  - Constipation [Unknown]
